FAERS Safety Report 6667438-3 (Version None)
Quarter: 2010Q2

REPORT INFORMATION
  Report Type: 
  Country: None (occurrence: None)
  Receive Date: 20100405
  Receipt Date: 20100329
  Transmission Date: 20101027
  Serious: Yes (Hospitalization)
  Sender: FDA-Public Use
  Company Number: JP-ROCHE-615260

PATIENT
  Sex: Male
  Weight: 20 kg

DRUGS (1)
  1. TAMIFLU [Suspect]
     Indication: INFLUENZA
     Dosage: DRUG NAME: TAMIFLU DRY SYRUP 3%
     Route: 048
     Dates: start: 20090119, end: 20090119

REACTIONS (1)
  - ABNORMAL BEHAVIOUR [None]
